FAERS Safety Report 12690344 (Version 1)
Quarter: 2016Q3

REPORT INFORMATION
  Report Type: Spontaneous
  Country: GB (occurrence: GB)
  Receive Date: 20160826
  Receipt Date: 20160826
  Transmission Date: 20161109
  Serious: Yes (Other)
  Sender: FDA-Public Use
  Company Number: PHHY2016GB115592

PATIENT
  Age: 65 Year
  Sex: Female
  Weight: 92.7 kg

DRUGS (1)
  1. LOSARTAN. [Suspect]
     Active Substance: LOSARTAN
     Indication: HYPERTENSION
     Dosage: 50 MG
     Route: 048
     Dates: start: 2006, end: 201602

REACTIONS (2)
  - Atrial fibrillation [Recovering/Resolving]
  - Circulatory collapse [Recovered/Resolved]
